FAERS Safety Report 26168293 (Version 1)
Quarter: 2025Q4

REPORT INFORMATION
  Report Type: Spontaneous
  Country: EU (occurrence: EU)
  Receive Date: 20251217
  Receipt Date: 20251217
  Transmission Date: 20260118
  Serious: Yes (Hospitalization, Other)
  Sender: RANBAXY
  Company Number: EU-AFSSAPS-NC2025001385

PATIENT
  Age: 35 Year
  Sex: Male
  Weight: 44 kg

DRUGS (6)
  1. QUETIAPINE [Suspect]
     Active Substance: QUETIAPINE
     Indication: Psychomotor hyperactivity
     Dosage: 50 MILLIGRAM, DAILY
     Route: 048
     Dates: start: 20250630, end: 20250719
  2. QUETIAPINE [Suspect]
     Active Substance: QUETIAPINE
     Dosage: 100 MILLIGRAM, DAILY
     Route: 048
     Dates: start: 20250720, end: 20250722
  3. VALPROATE SODIUM [Suspect]
     Active Substance: VALPROATE SODIUM
     Indication: Epilepsy
     Dosage: 750 MILLIGRAM, DAILY
     Route: 048
     Dates: end: 20250701
  4. VALPROATE SODIUM [Suspect]
     Active Substance: VALPROATE SODIUM
     Dosage: 1000 MILLIGRAM, DAILY
     Route: 048
     Dates: start: 20250702
  5. MIRTAZAPINE [Suspect]
     Active Substance: MIRTAZAPINE
     Indication: Psychomotor hyperactivity
     Dosage: 15 MILLIGRAM, DAILY
     Route: 048
     Dates: start: 20250615, end: 20250722
  6. LOXAPINE [Suspect]
     Active Substance: LOXAPINE
     Indication: Psychomotor hyperactivity
     Dosage: 250 MILLIGRAM, DAILY
     Route: 048
     Dates: start: 202506, end: 20250720

REACTIONS (3)
  - Extrapyramidal disorder [Recovering/Resolving]
  - Altered state of consciousness [Recovered/Resolved]
  - Mydriasis [Recovered/Resolved]

NARRATIVE: CASE EVENT DATE: 20250719
